FAERS Safety Report 5262804-5 (Version None)
Quarter: 2007Q1

REPORT INFORMATION
  Report Type: 
  Country: None (occurrence: None)
  Receive Date: 20070312
  Receipt Date: 20070306
  Transmission Date: 20070707
  Serious: Yes (Hospitalization)
  Sender: FDA-Public Use
  Company Number: JP-JPN-A200700850

PATIENT
  Age: 73 Year
  Sex: Female

DRUGS (19)
  1. ZOVIRAX [Suspect]
     Indication: HERPES ZOSTER
     Route: 042
     Dates: start: 20070219, end: 20070221
  2. VALTREX [Concomitant]
     Route: 048
  3. ARASENA-A [Concomitant]
     Route: 065
  4. VOLTAREN [Concomitant]
     Route: 054
  5. GASCON [Concomitant]
     Route: 048
  6. GASTER D [Concomitant]
     Dosage: 20MG PER DAY
     Route: 048
  7. MAGLAX [Concomitant]
     Dosage: 2970MG PER DAY
     Route: 048
  8. URSO [Concomitant]
     Dosage: 150MG PER DAY
     Route: 048
  9. UNKNOWN MEDICATION [Concomitant]
     Route: 048
  10. STROCAIN [Concomitant]
     Route: 048
  11. ASPIRIN [Concomitant]
     Dosage: 100MG PER DAY
     Route: 048
  12. FUROSEMIDE [Concomitant]
     Dosage: 20MG PER DAY
     Route: 048
  13. NU-LOTAN [Concomitant]
     Dosage: 50MG PER DAY
     Route: 048
  14. PERSANTIN [Concomitant]
     Dosage: 300MG PER DAY
     Route: 048
  15. TAMBOCOR [Concomitant]
     Dosage: 150MG PER DAY
     Route: 048
  16. ASPARA-CA [Concomitant]
     Dosage: 4UNIT PER DAY
     Route: 048
  17. ROCALTROL [Concomitant]
     Dosage: .5MCG PER DAY
     Route: 048
  18. BENET [Concomitant]
     Dosage: 2.5MG PER DAY
     Route: 048
  19. YAKUBAN [Concomitant]
     Route: 062

REACTIONS (2)
  - HYPONATRAEMIA [None]
  - ILEUS PARALYTIC [None]
